FAERS Safety Report 4423705-5 (Version None)
Quarter: 2004Q3

REPORT INFORMATION
  Report Type: 
  Country: None (occurrence: None)
  Receive Date: 20040805
  Receipt Date: 20040726
  Transmission Date: 20050211
  Serious: Yes (Other)
  Sender: FDA-Public Use
  Company Number: DE-JNJFOC-20040701906

PATIENT
  Age: 50 Year
  Sex: Female
  Weight: 54 kg

DRUGS (5)
  1. CAELYX (DOXORUBICIN HYDROCHLORIDE) LIPOSOME INJECTION [Suspect]
     Indication: METASTASES TO LUNG
     Dosage: 60 MG, INTRAVENOUS
     Route: 042
     Dates: start: 20030301, end: 20030901
  2. CAELYX (DOXORUBICIN HYDROCHLORIDE) LIPOSOME INJECTION [Suspect]
     Indication: OVARIAN CANCER
     Dosage: 60 MG, INTRAVENOUS
     Route: 042
     Dates: start: 20030301, end: 20030901
  3. CAELYX (DOXORUBICIN HYDROCHLORIDE) LIPOSOME INJECTION [Suspect]
     Indication: METASTASES TO LUNG
     Dosage: 60 MG, INTRAVENOUS
     Route: 042
     Dates: start: 20040201, end: 20040401
  4. CAELYX (DOXORUBICIN HYDROCHLORIDE) LIPOSOME INJECTION [Suspect]
     Indication: OVARIAN CANCER
     Dosage: 60 MG, INTRAVENOUS
     Route: 042
     Dates: start: 20040201, end: 20040401
  5. CARBAMAZEPINE (CARBAMAZEPINE) TABLETS [Concomitant]

REACTIONS (2)
  - ACUTE MYELOID LEUKAEMIA [None]
  - DRUG INTOLERANCE [None]
